FAERS Safety Report 14228392 (Version 2)
Quarter: 2018Q1

REPORT INFORMATION
  Report Type: Report from Study
  Country: US (occurrence: US)
  Receive Date: 20171127
  Receipt Date: 20180320
  Transmission Date: 20180508
  Serious: Yes (Hospitalization)
  Sender: FDA-Public Use
  Company Number: US-BIOGEN-2017BI00487339

PATIENT
  Age: 48 Year
  Sex: Male

DRUGS (1)
  1. TECFIDERA [Suspect]
     Active Substance: DIMETHYL FUMARATE
     Indication: MULTIPLE SCLEROSIS
     Dosage: MAINTENANCE DOSE
     Route: 048
     Dates: start: 201404

REACTIONS (9)
  - Hair texture abnormal [Unknown]
  - Generalised erythema [Unknown]
  - Herpes zoster [Unknown]
  - Multiple sclerosis relapse [Unknown]
  - Hair colour changes [Unknown]
  - Pain [Unknown]
  - Alopecia [Unknown]
  - White blood cell count decreased [Unknown]
  - Hypoaesthesia [Unknown]

NARRATIVE: CASE EVENT DATE: 201711
